FAERS Safety Report 6585796-5 (Version None)
Quarter: 2010Q1

REPORT INFORMATION
  Report Type: 
  Country: None (occurrence: None)
  Receive Date: 20100217
  Receipt Date: 20100205
  Transmission Date: 20100710
  Serious: Yes (Other)
  Sender: FDA-Public Use
  Company Number: US-PFIZER INC-2007008522

PATIENT
  Sex: Female

DRUGS (8)
  1. CHANTIX [Suspect]
     Dosage: 0.5 MG, UNK
     Dates: start: 20060901
  2. CHANTIX [Interacting]
     Dosage: 0.5 MG, UNK
     Dates: start: 20080101
  3. CHANTIX [Interacting]
     Dosage: 1 MG, UNK
     Dates: start: 20100103
  4. CYMBALTA [Interacting]
     Indication: DEPRESSION
     Dates: end: 20070101
  5. SYNTHROID [Concomitant]
  6. XANAX [Concomitant]
  7. ACETYLSALICYLIC ACID [Concomitant]
  8. MOTRIN [Concomitant]

REACTIONS (9)
  - DEPRESSION [None]
  - DRUG INTERACTION [None]
  - FOOD CRAVING [None]
  - HEADACHE [None]
  - NAUSEA [None]
  - SOMNOLENCE [None]
  - STRESS [None]
  - TOBACCO USER [None]
  - WEIGHT INCREASED [None]
